FAERS Safety Report 23182722 (Version 1)
Quarter: 2023Q4

REPORT INFORMATION
  Report Type: Spontaneous
  Country: US (occurrence: US)
  Receive Date: 20231114
  Receipt Date: 20231114
  Transmission Date: 20240110
  Serious: Yes (Other)
  Sender: FDA-Public Use
  Company Number: US-PFIZER INC-202300361245

PATIENT
  Age: 74 Year
  Sex: Female

DRUGS (1)
  1. METHOTREXATE SODIUM [Suspect]
     Active Substance: METHOTREXATE SODIUM
     Dosage: UNK

REACTIONS (19)
  - Renal hamartoma [Unknown]
  - Urethral stenosis [Unknown]
  - Alopecia [Unknown]
  - Nausea [Unknown]
  - Oral pain [Unknown]
  - Cognitive disorder [Unknown]
  - Mood altered [Unknown]
  - Irritability [Unknown]
  - Respiratory disorder [Unknown]
  - Arthralgia [Unknown]
  - Pain in extremity [Unknown]
  - Stress [Unknown]
  - Fatigue [Unknown]
  - Joint stiffness [Unknown]
  - Dry eye [Unknown]
  - Myalgia [Unknown]
  - Muscular weakness [Unknown]
  - Sleep disorder [Unknown]
  - Pain [Unknown]
